FAERS Safety Report 19051910 (Version 1)
Quarter: 2021Q1

REPORT INFORMATION
  Report Type: Spontaneous
  Country: US (occurrence: US)
  Receive Date: 20210324
  Receipt Date: 20210324
  Transmission Date: 20210420
  Serious: No
  Sender: FDA-Public Use
  Company Number: US-TARO-2020TAR00223

PATIENT

DRUGS (3)
  1. LAMOTRIGINE TABLETS 100 MG [Suspect]
     Active Substance: LAMOTRIGINE
     Indication: BIPOLAR DISORDER
     Dosage: 100 MG, BID [ONE IN THE MORNING AND ONE AT NIGHT]
     Route: 048
     Dates: start: 201908, end: 201911
  2. LORATIDINE [Concomitant]
     Active Substance: LORATADINE
     Indication: PRODUCT USED FOR UNKNOWN INDICATION
     Dosage: 10 MG, DAILY (1 TABLET PER DAY)
     Route: 065
     Dates: start: 201911
  3. CLARITIN [Concomitant]
     Active Substance: LORATADINE
     Indication: PRURITUS
     Dosage: 10 MG [NOT REALLY OFTEN JUST WHEN SHE WAS ITCHY]
     Route: 065
     Dates: start: 20191030

REACTIONS (2)
  - Hypersensitivity [Recovering/Resolving]
  - Dry skin [Recovering/Resolving]

NARRATIVE: CASE EVENT DATE: 201911
